FAERS Safety Report 8479631-8 (Version None)
Quarter: 2012Q2

REPORT INFORMATION
  Report Type: 
  Country: None (occurrence: None)
  Receive Date: 20120629
  Receipt Date: 20120626
  Transmission Date: 20120825
  Serious: No
  Sender: FDA-Public Use
  Company Number: US-PFIZER INC-2012153857

PATIENT
  Sex: Male

DRUGS (1)
  1. NEURONTIN [Suspect]
     Dosage: UNK
     Route: 048

REACTIONS (8)
  - EXERCISE LACK OF [None]
  - MYALGIA [None]
  - ARTHRALGIA [None]
  - IMPAIRED WORK ABILITY [None]
  - FATIGUE [None]
  - INSOMNIA [None]
  - DEPRESSION [None]
  - PAIN [None]
